FAERS Safety Report 10208904 (Version 1)
Quarter: 2014Q2

REPORT INFORMATION
  Report Type: Spontaneous
  Country: US (occurrence: US)
  Receive Date: 20140530
  Receipt Date: 20140530
  Transmission Date: 20141212
  Serious: Yes (Other)
  Sender: FDA-Public Use
  Company Number: US-ELI_LILLY_AND_COMPANY-US201405007531

PATIENT
  Sex: Female

DRUGS (3)
  1. ZYPREXA ZYDIS [Suspect]
     Indication: SCHIZOPHRENIA
     Dosage: 5 MG, BID
     Route: 048
  2. ZYPREXA ZYDIS [Suspect]
     Dosage: 2.5 MG, EACH MORNING
     Route: 048
  3. ZYPREXA ZYDIS [Suspect]
     Dosage: 5 MG, EACH EVENING
     Route: 048

REACTIONS (3)
  - Unresponsive to stimuli [Unknown]
  - Off label use [Unknown]
  - Lethargy [Unknown]
